FAERS Safety Report 7602698-3 (Version None)
Quarter: 2011Q2

REPORT INFORMATION
  Report Type: 
  Country: None (occurrence: None)
  Receive Date: 20110629
  Receipt Date: 20110621
  Transmission Date: 20111010
  Serious: Yes (Hospitalization)
  Sender: FDA-Public Use
  Company Number: 2011SP029056

PATIENT
  Age: 24 Year
  Sex: Female

DRUGS (1)
  1. PEGINTERFERON ALFA-2B [Suspect]
     Indication: MALIGNANT MELANOMA
     Dosage: 1 DF;

REACTIONS (3)
  - VOMITING [None]
  - PYREXIA [None]
  - CHILLS [None]
